FAERS Safety Report 23945491 (Version 2)
Quarter: 2024Q2

REPORT INFORMATION
  Report Type: Spontaneous
  Country: PT (occurrence: PT)
  Receive Date: 20240606
  Receipt Date: 20240625
  Transmission Date: 20240716
  Serious: Yes (Hospitalization)
  Sender: FDA-Public Use
  Company Number: PT-TEVA-VS-3205939

PATIENT
  Age: 67 Year
  Sex: Female

DRUGS (5)
  1. VINCRISTINE [Suspect]
     Active Substance: VINCRISTINE
     Indication: Diffuse large B-cell lymphoma
     Dosage: PART OF R-CHOP REGIMEN
     Route: 065
     Dates: end: 2010
  2. RITUXIMAB [Suspect]
     Active Substance: RITUXIMAB
     Indication: Diffuse large B-cell lymphoma
     Dosage: PART OF R-CHOP REGIMEN
     Route: 065
     Dates: end: 2010
  3. CYCLOPHOSPHAMIDE [Suspect]
     Active Substance: CYCLOPHOSPHAMIDE
     Indication: Diffuse large B-cell lymphoma
     Dosage: PART OF R-CHOP REGIMEN
     Route: 065
     Dates: end: 2010
  4. DOXORUBICIN [Suspect]
     Active Substance: DOXORUBICIN
     Indication: Diffuse large B-cell lymphoma
     Dosage: PART OF R-CHOP REGIMEN
     Route: 065
     Dates: end: 2010
  5. PREDNISONE [Suspect]
     Active Substance: PREDNISONE
     Indication: Diffuse large B-cell lymphoma
     Dosage: PART OF R-CHOP REGIMEN
     Route: 065
     Dates: end: 2010

REACTIONS (4)
  - Tumour lysis syndrome [Unknown]
  - Acute kidney injury [Unknown]
  - Multiple organ dysfunction syndrome [Unknown]
  - Metabolic acidosis [Unknown]
